FAERS Safety Report 8519833 (Version 2)
Quarter: 2012Q4

REPORT INFORMATION
  Report Type: 
  Country: US (occurrence: US)
  Receive Date: 20120418
  Receipt Date: 20121120
  Transmission Date: 20130627
  Serious: No
  Sender: FDA-Public Use
  Company Number: US-ASTRAZENECA-2011SE62073

PATIENT
  Age: 63 Year
  Sex: Male
  Weight: 81.6 kg

DRUGS (4)
  1. NEXIUM [Suspect]
     Route: 048
     Dates: start: 20110929
  2. SIMVASTATIN [Concomitant]
  3. TIMOLOL EYE DROP [Concomitant]
  4. MEDICATION FOR DEPRESSION [Concomitant]

REACTIONS (4)
  - Decreased appetite [Unknown]
  - Flatulence [Unknown]
  - Abdominal discomfort [Unknown]
  - Expired drug administered [Unknown]
